FAERS Safety Report 5209202-8 (Version None)
Quarter: 2007Q1

REPORT INFORMATION
  Report Type: 
  Country: None (occurrence: None)
  Receive Date: 20070111
  Receipt Date: 20061229
  Transmission Date: 20070707
  Serious: Yes (Hospitalization)
  Sender: FDA-Public Use
  Company Number: HJQWYE334103JAN07

PATIENT
  Age: 50 Year
  Sex: Female

DRUGS (6)
  1. EFFEXOR XR [Suspect]
     Indication: ANXIETY
     Dosage: 37.5 MG 1X PER 1 DAY
     Dates: start: 20061015, end: 20061224
  2. EFFEXOR XR [Suspect]
     Indication: ANXIETY
     Dosage: 37.5 MG 1X PER 1 DAY
     Dates: start: 20061226
  3. SYNTHROID [Concomitant]
  4. PROGESTERONE [Concomitant]
  5. ESTROGENS [Concomitant]
  6. DHEA (PRASTERONE) [Concomitant]

REACTIONS (19)
  - ANXIETY [None]
  - ASTHENIA [None]
  - BLOOD POTASSIUM DECREASED [None]
  - DECREASED APPETITE [None]
  - DIARRHOEA [None]
  - DIZZINESS [None]
  - DRUG DOSE OMISSION [None]
  - DRUG WITHDRAWAL SYNDROME [None]
  - EYE PAIN [None]
  - FATIGUE [None]
  - FEAR [None]
  - FEELING ABNORMAL [None]
  - HEADACHE [None]
  - HEART RATE INCREASED [None]
  - HYPONATRAEMIA [None]
  - NAUSEA [None]
  - PALPITATIONS [None]
  - RHINALGIA [None]
  - VERTIGO [None]
